FAERS Safety Report 6280600-7 (Version None)
Quarter: 2009Q3

REPORT INFORMATION
  Report Type: 
  Country: None (occurrence: None)
  Receive Date: 20090724
  Receipt Date: 20080912
  Transmission Date: 20100115
  Serious: Yes (Other)
  Sender: FDA-Public Use
  Company Number: A0748627A

PATIENT
  Age: 77 Year
  Sex: Female
  Weight: 136.4 kg

DRUGS (2)
  1. AVANDIA [Suspect]
     Indication: DIABETES MELLITUS
     Route: 048
     Dates: start: 20020901, end: 20060801
  2. METFORMIN HCL [Concomitant]

REACTIONS (1)
  - CARDIAC FAILURE CONGESTIVE [None]
